FAERS Safety Report 10636809 (Version 1)
Quarter: 2014Q4

REPORT INFORMATION
  Report Type: Spontaneous
  Country: US (occurrence: None)
  Receive Date: 20141204
  Receipt Date: 20141204
  Transmission Date: 20150529
  Serious: No
  Sender: FDA-Public Use
  Company Number: None

PATIENT
  Age: 48 Year
  Sex: Female
  Weight: 59.88 kg

DRUGS (3)
  1. EPINASTINE HCL [Suspect]
     Active Substance: EPINASTINE HYDROCHLORIDE
     Indication: OCULAR HYPERAEMIA
     Dosage: 1 DROP TWICE DAILY INTO THE EYE
     Route: 047
  2. EPINASTINE HCL [Suspect]
     Active Substance: EPINASTINE HYDROCHLORIDE
     Indication: PRURITUS
     Dosage: 1 DROP TWICE DAILY INTO THE EYE
     Route: 047
  3. EPINASTINE HCL [Suspect]
     Active Substance: EPINASTINE HYDROCHLORIDE
     Indication: MULTIPLE ALLERGIES
     Dosage: 1 DROP TWICE DAILY INTO THE EYE
     Route: 047

REACTIONS (3)
  - Drug ineffective [None]
  - Product substitution issue [None]
  - Product quality issue [None]

NARRATIVE: CASE EVENT DATE: 20141203
